FAERS Safety Report 16773423 (Version 1)
Quarter: 2019Q3

REPORT INFORMATION
  Report Type: Spontaneous
  Country: US (occurrence: US)
  Receive Date: 20190904
  Receipt Date: 20190904
  Transmission Date: 20191005
  Serious: No
  Sender: FDA-Public Use
  Company Number: US-PURDUE-USA-2019-0147714

PATIENT
  Sex: Male

DRUGS (5)
  1. FENTANYL. [Suspect]
     Active Substance: FENTANYL
     Dosage: 50 MCG, UNK
     Route: 062
  2. LYRICA [Suspect]
     Active Substance: PREGABALIN
     Indication: ARACHNOIDITIS
     Dosage: 200 MG, BID
     Route: 048
  3. OXYCODONE/ ACETAMINOPHEN TABLETS [Suspect]
     Active Substance: ACETAMINOPHEN\OXYCODONE HYDROCHLORIDE
     Indication: ARACHNOIDITIS
     Dosage: (10 MG/ 325 MG) 1 DF, QID
     Route: 048
  4. FENTANYL. [Suspect]
     Active Substance: FENTANYL
     Dosage: 75 MCG, Q3D
     Route: 062
  5. FENTANYL. [Suspect]
     Active Substance: FENTANYL
     Indication: ARACHNOIDITIS
     Dosage: 25 MCG, UNK
     Route: 062
     Dates: start: 201904

REACTIONS (1)
  - Inadequate analgesia [Not Recovered/Not Resolved]
